FAERS Safety Report 8201934-2 (Version None)
Quarter: 2012Q1

REPORT INFORMATION
  Report Type: 
  Country: None (occurrence: None)
  Receive Date: 20120312
  Receipt Date: 20120307
  Transmission Date: 20120608
  Serious: Yes (Other)
  Sender: FDA-Public Use
  Company Number: BR-PFIZER INC-2012061886

PATIENT
  Age: 42 Year
  Sex: Female

DRUGS (2)
  1. CABERGOLINE [Suspect]
     Dosage: 0.5 MG PER DAY
  2. CABERGOLINE [Suspect]
     Indication: ADENOMA BENIGN
     Dosage: 0.5 MG, 3 TIMES A WEEK

REACTIONS (2)
  - DRUG INEFFECTIVE [None]
  - NEOPLASM PROGRESSION [None]
